FAERS Safety Report 18707359 (Version 8)
Quarter: 2024Q4

REPORT INFORMATION
  Report Type: Spontaneous
  Country: DE (occurrence: DE)
  Receive Date: 20210106
  Receipt Date: 20241209
  Transmission Date: 20250114
  Serious: Yes (Life-Threatening, Other)
  Sender: INCYTE
  Company Number: DE-002147023-NVSC2020DE344522

PATIENT

DRUGS (29)
  1. RUXOLITINIB [Suspect]
     Active Substance: RUXOLITINIB
     Indication: Allogenic stem cell transplantation
     Dosage: UNK
     Route: 065
  2. RUXOLITINIB [Suspect]
     Active Substance: RUXOLITINIB
     Indication: Immunosuppressant drug therapy
  3. CYCLOSPORINE [Suspect]
     Active Substance: CYCLOSPORINE
     Indication: Prophylaxis against graft versus host disease
     Dosage: UNK
     Route: 065
  4. CYCLOSPORINE [Suspect]
     Active Substance: CYCLOSPORINE
     Indication: Immunosuppressant drug therapy
  5. IMATINIB [Suspect]
     Active Substance: IMATINIB
     Indication: Chronic myeloid leukaemia
     Dosage: UNK
     Route: 065
  6. NILOTINIB [Suspect]
     Active Substance: NILOTINIB
     Indication: Chronic myeloid leukaemia
     Dosage: UNK
     Route: 065
  7. ADALIMUMAB [Suspect]
     Active Substance: ADALIMUMAB
     Indication: Immunosuppressant drug therapy
     Dosage: UNK
     Route: 065
  8. MYCOPHENOLATE MOFETIL [Suspect]
     Active Substance: MYCOPHENOLATE MOFETIL
     Indication: Prophylaxis against graft versus host disease
     Dosage: UNK
     Route: 065
  9. MYCOPHENOLATE MOFETIL [Suspect]
     Active Substance: MYCOPHENOLATE MOFETIL
     Indication: Immunosuppressant drug therapy
  10. FLUDARABINE PHOSPHATE [Suspect]
     Active Substance: FLUDARABINE PHOSPHATE
     Indication: Bone marrow conditioning regimen
     Dosage: 40 MG/M2, QD (DAY -7 TO -4)
     Route: 065
  11. FLUDARABINE PHOSPHATE [Suspect]
     Active Substance: FLUDARABINE PHOSPHATE
     Indication: Allogenic stem cell transplantation
     Dosage: 40 MG/M2, QD (DAY -7 TO -4)
     Route: 065
  12. FLUDARABINE PHOSPHATE [Suspect]
     Active Substance: FLUDARABINE PHOSPHATE
     Indication: Chronic myeloid leukaemia
  13. TACROLIMUS [Suspect]
     Active Substance: TACROLIMUS
     Indication: Immunosuppressant drug therapy
     Dosage: UNK
     Route: 065
  14. TACROLIMUS [Suspect]
     Active Substance: TACROLIMUS
     Indication: Allogenic stem cell transplantation
  15. DASATINIB [Suspect]
     Active Substance: DASATINIB
     Indication: Chronic myeloid leukaemia
     Dosage: UNK
     Route: 065
  16. PREDNISONE [Suspect]
     Active Substance: PREDNISONE
     Indication: Immunosuppressant drug therapy
     Dosage: UNK
     Route: 065
  17. MELPHALAN [Suspect]
     Active Substance: MELPHALAN
     Indication: Bone marrow conditioning regimen
     Dosage: 160 MG/M2 (DAY -2)
     Route: 065
  18. MELPHALAN [Suspect]
     Active Substance: MELPHALAN
     Indication: Allogenic stem cell transplantation
  19. MELPHALAN [Suspect]
     Active Substance: MELPHALAN
     Indication: Chronic myeloid leukaemia
  20. THIOTEPA [Suspect]
     Active Substance: THIOTEPA
     Indication: Bone marrow conditioning regimen
     Dosage: 5 MG/KG, BID (DAY -3)
     Route: 065
  21. THIOTEPA [Suspect]
     Active Substance: THIOTEPA
     Indication: Allogenic stem cell transplantation
     Dosage: 2X 5MG/ KG, DAY-3
     Route: 065
  22. THIOTEPA [Suspect]
     Active Substance: THIOTEPA
     Indication: Chronic myeloid leukaemia
     Dosage: 10 MILLIGRAM/KILOGRAM, QD (5MG/KG, BID (DAY -3))
     Route: 065
  23. THIOTEPA [Suspect]
     Active Substance: THIOTEPA
     Dosage: DAY -3
     Route: 065
  24. THIOTEPA [Suspect]
     Active Substance: THIOTEPA
     Dosage: 5 MG/KG, BID (DAY -3)
     Route: 065
  25. SIROLIMUS [Suspect]
     Active Substance: SIROLIMUS
     Indication: Allogenic stem cell transplantation
     Dosage: UNK
     Route: 065
  26. SIROLIMUS [Suspect]
     Active Substance: SIROLIMUS
     Indication: Immunosuppressant drug therapy
  27. TOCILIZUMAB [Suspect]
     Active Substance: TOCILIZUMAB
     Indication: Immunosuppressant drug therapy
     Dosage: UNK
     Route: 065
  28. ENVARSUS XR [Suspect]
     Active Substance: TACROLIMUS
     Indication: Immunosuppressant drug therapy
     Dosage: UNK
     Route: 065
  29. ENVARSUS XR [Suspect]
     Active Substance: TACROLIMUS
     Indication: Allogenic stem cell transplantation
     Dosage: UNK
     Route: 065

REACTIONS (5)
  - Acute graft versus host disease in intestine [Recovered/Resolved]
  - Therapy non-responder [Unknown]
  - Drug ineffective [Unknown]
  - Product use in unapproved indication [Unknown]
  - Product use issue [Unknown]
